FAERS Safety Report 8896456 (Version 1)
Quarter: 2012Q4

REPORT INFORMATION
  Report Type: Spontaneous
  Country: US (occurrence: None)
  Receive Date: 20121101
  Receipt Date: 20121101
  Transmission Date: 20130627
  Serious: Yes (Life-Threatening, Other)
  Sender: FDA-Public Use
  Company Number: FK201203235

PATIENT
  Age: 57 Year
  Sex: Female
  Weight: 79 kg

DRUGS (2)
  1. PROTAMINE SULFATE [Suspect]
     Indication: HEPARIN NEUTRALISATION THERAPY
     Dosage: VIA CENTRAL LINE AND TITRATED SLOWLY
     Route: 042
  2. HEPARIN (HEPARIN) [Concomitant]

REACTIONS (4)
  - Vasoplegia syndrome [None]
  - Hypersensitivity [None]
  - Sinus tachycardia [None]
  - Blood pressure decreased [None]
